FAERS Safety Report 24428503 (Version 1)
Quarter: 2024Q4

REPORT INFORMATION
  Report Type: Report from Study
  Country: DE (occurrence: DE)
  Receive Date: 20241011
  Receipt Date: 20241011
  Transmission Date: 20250114
  Serious: Yes (Hospitalization, Other)
  Sender: SANDOZ
  Company Number: DE-002147023-NVSC2022DE262920

PATIENT
  Sex: Female

DRUGS (9)
  1. ETANERCEPT [Suspect]
     Active Substance: ETANERCEPT
     Indication: Rheumatoid arthritis
     Dosage: 50 MG, QW (EVERY 7 DAYS)
     Route: 065
  2. ETANERCEPT [Suspect]
     Active Substance: ETANERCEPT
     Dosage: 50 MG
     Route: 065
     Dates: start: 202010
  3. METHOTREXATE [Suspect]
     Active Substance: METHOTREXATE
     Indication: Product used for unknown indication
     Dosage: 10 MG, QW
     Route: 065
  4. METHOTREXATE [Suspect]
     Active Substance: METHOTREXATE
     Dosage: 10 MG
     Route: 065
  5. METHOTREXATE [Suspect]
     Active Substance: METHOTREXATE
     Dosage: 15.0 MG
     Route: 065
  6. METHOTREXATE [Suspect]
     Active Substance: METHOTREXATE
     Dosage: 7.5 MG
     Route: 065
  7. IBUPROFEN [Concomitant]
     Active Substance: IBUPROFEN
     Indication: Product used for unknown indication
     Dosage: 600 MG, PRN (AS REQUIRED)
     Route: 065
  8. METAMIZOLE [Concomitant]
     Active Substance: METAMIZOLE
     Indication: Product used for unknown indication
     Dosage: UPTO 160, QD
     Route: 065
  9. PREDNISOLONE [Concomitant]
     Active Substance: PREDNISOLONE
     Indication: Product used for unknown indication
     Dosage: 6 MG, QD
     Route: 065

REACTIONS (2)
  - Ovarian cancer [Not Recovered/Not Resolved]
  - Ascites [Not Recovered/Not Resolved]

NARRATIVE: CASE EVENT DATE: 20220701
